FAERS Safety Report 8631498 (Version 2)
Quarter: 2014Q3

REPORT INFORMATION
  Report Type: Spontaneous
  Country: JP (occurrence: JP)
  Receive Date: 20120623
  Receipt Date: 20140731
  Transmission Date: 20150326
  Serious: Yes (Death, Hospitalization)
  Sender: FDA-Public Use
  Company Number: JP-TEVA-344005ISR

PATIENT
  Sex: Male

DRUGS (3)
  1. CRAVIT [Suspect]
     Active Substance: LEVOFLOXACIN
     Dosage: 1000 MILLIGRAM DAILY;
  2. (TS) ROZECLART, INJ, 1G 1VIAL [Suspect]
     Active Substance: CEFTRIAXONE SODIUM
     Route: 042
  3. ROCEPHIN [Suspect]
     Active Substance: CEFTRIAXONE SODIUM

REACTIONS (2)
  - Cardiac failure congestive [Fatal]
  - Stevens-Johnson syndrome [Unknown]
